FAERS Safety Report 8180552-9 (Version None)
Quarter: 2012Q1

REPORT INFORMATION
  Report Type: 
  Country: None (occurrence: None)
  Receive Date: 20120224
  Receipt Date: 20120221
  Transmission Date: 20120608
  Serious: Yes (Hospitalization)
  Sender: FDA-Public Use
  Company Number: 2012031019

PATIENT
  Age: 62 Year
  Sex: Male
  Weight: 80.7403 kg

DRUGS (2)
  1. HIZENTRA [Suspect]
     Indication: HYPOGLOBULINAEMIA
     Dosage: (8 G 1X/WEEK, 4 GM (20 ML) SUBCUTANEOUS)
     Route: 058
     Dates: start: 20120127, end: 20120127
  2. HIZENTRA [Suspect]
     Indication: IMMUNODEFICIENCY COMMON VARIABLE
     Dosage: (8 G 1X/WEEK, 4 GM (20 ML) SUBCUTANEOUS)
     Route: 058
     Dates: start: 20120127, end: 20120127

REACTIONS (12)
  - FATIGUE [None]
  - CHEST PAIN [None]
  - INFUSION SITE SWELLING [None]
  - DYSPNOEA [None]
  - CHILLS [None]
  - CHEST DISCOMFORT [None]
  - INFUSION SITE THROMBOSIS [None]
  - PNEUMONIA [None]
  - BRONCHIECTASIS [None]
  - PAIN [None]
  - ASTHENIA [None]
  - HEADACHE [None]
